FAERS Safety Report 12203067 (Version 1)
Quarter: 2016Q1

REPORT INFORMATION
  Report Type: Spontaneous
  Country: GB (occurrence: GB)
  Receive Date: 20160323
  Receipt Date: 20160323
  Transmission Date: 20160526
  Serious: Yes (Death, Hospitalization, Other)
  Sender: FDA-Public Use
  Company Number: GB-ACCORD-022556

PATIENT
  Age: 47 Year
  Sex: Male

DRUGS (2)
  1. CAPECITABINE. [Suspect]
     Active Substance: CAPECITABINE
     Indication: METASTASES TO LIVER
     Dates: start: 20120413
  2. ZAPONEX [Suspect]
     Active Substance: CLOZAPINE
     Indication: SCHIZOPHRENIA
     Dosage: ALSO TOOK FROM 16-DEC-2011 TO FEB-2016.
     Route: 048
     Dates: start: 20091218, end: 20111107

REACTIONS (13)
  - Malaise [Not Recovered/Not Resolved]
  - White blood cell count increased [Not Recovered/Not Resolved]
  - Adenocarcinoma of colon [Not Recovered/Not Resolved]
  - Intestinal obstruction [Unknown]
  - Death [Fatal]
  - Metastases to liver [Not Recovered/Not Resolved]
  - Product use issue [Unknown]
  - Fall [Unknown]
  - Neutrophil count increased [Not Recovered/Not Resolved]
  - Rectosigmoid cancer stage III [Not Recovered/Not Resolved]
  - Off label use [Unknown]
  - Platelet count increased [Not Recovered/Not Resolved]
  - Platelet count decreased [Recovered/Resolved]

NARRATIVE: CASE EVENT DATE: 201111
